FAERS Safety Report 7294679-7 (Version None)
Quarter: 2011Q1

REPORT INFORMATION
  Report Type: 
  Country: None (occurrence: None)
  Receive Date: 20110216
  Receipt Date: 20110209
  Transmission Date: 20110831
  Serious: Yes (Other)
  Sender: FDA-Public Use
  Company Number: US-PFIZER INC-2010087674

PATIENT
  Sex: Female
  Weight: 50 kg

DRUGS (5)
  1. PRISTIQ [Suspect]
     Indication: ANXIETY
  2. ZOLOFT [Suspect]
     Indication: DEPRESSION
     Dosage: 50MG DAILY
     Dates: start: 20100201
  3. ATIVAN [Concomitant]
     Indication: SLEEP DISORDER
     Dosage: UNK
     Dates: start: 20100201
  4. ZOLOFT [Suspect]
     Indication: ANXIETY
     Dosage: 100MG DAILY
     Dates: end: 20100417
  5. PRISTIQ [Suspect]
     Indication: DEPRESSION
     Dosage: 50 MG, 1X/DAY
     Route: 048
     Dates: start: 20100417

REACTIONS (7)
  - DIARRHOEA [None]
  - SLEEP DISORDER [None]
  - INCORRECT DOSE ADMINISTERED [None]
  - NAUSEA [None]
  - WEIGHT DECREASED [None]
  - EXPIRED DRUG ADMINISTERED [None]
  - MOOD SWINGS [None]
